FAERS Safety Report 9983174 (Version 3)
Quarter: 2014Q2

REPORT INFORMATION
  Report Type: Spontaneous
  Country: JP (occurrence: JP)
  Receive Date: 20140307
  Receipt Date: 20140501
  Transmission Date: 20141212
  Serious: Yes (Hospitalization)
  Sender: FDA-Public Use
  Company Number: PHHY2014JP028058

PATIENT
  Age: 65 Year
  Sex: Male

DRUGS (1)
  1. ZOMETA [Suspect]
     Indication: METASTASES TO BONE
     Route: 042
     Dates: start: 201010, end: 201112

REACTIONS (4)
  - Osteonecrosis of jaw [Recovered/Resolved]
  - Osteomyelitis [Recovered/Resolved]
  - Exposed bone in jaw [Recovered/Resolved]
  - Inflammation [Recovered/Resolved]
